FAERS Safety Report 6993698-5 (Version None)
Quarter: 2010Q3

REPORT INFORMATION
  Report Type: 
  Country: None (occurrence: None)
  Receive Date: 20100917
  Receipt Date: 20100128
  Transmission Date: 20110219
  Serious: Yes (Other)
  Sender: FDA-Public Use
  Company Number: US-ASTRAZENECA-2010SE04140

PATIENT
  Age: 51 Year
  Sex: Female

DRUGS (4)
  1. SEROQUEL XR [Suspect]
     Dosage: 50 MG FIRST DAY
     Route: 048
  2. SEROQUEL XR [Suspect]
     Dosage: 100 MG SECOND DAY
     Route: 048
  3. SEROQUEL XR [Suspect]
     Dosage: 200 MG THIRD DAY
     Route: 048
  4. SEROQUEL XR [Suspect]
     Dosage: 300 MG FOURTH DAY
     Route: 048

REACTIONS (2)
  - HALLUCINATION [None]
  - SUICIDAL IDEATION [None]
